FAERS Safety Report 19531318 (Version 23)
Quarter: 2024Q4

REPORT INFORMATION
  Report Type: Spontaneous
  Country: PL (occurrence: PL)
  Receive Date: 20210714
  Receipt Date: 20241213
  Transmission Date: 20250115
  Serious: Yes (Hospitalization, Other)
  Sender: AUROBINDO
  Company Number: PL-002147023-NVSC2021PL140813

PATIENT
  Age: 62 Year
  Sex: Male
  Weight: 98 kg

DRUGS (45)
  1. AMLODIPINE [Suspect]
     Active Substance: AMLODIPINE BESYLATE
     Indication: Product used for unknown indication
     Dosage: 10 MILLIGRAM, ONCE A DAY(IN THE MORNING)
     Route: 065
  2. BISOPROLOL [Suspect]
     Active Substance: BISOPROLOL
     Indication: Heart failure with reduced ejection fraction
     Dosage: 7.5 MILLIGRAM
     Route: 065
  3. BISOPROLOL [Suspect]
     Active Substance: BISOPROLOL
     Indication: Coronary artery disease
     Dosage: 8 MILLIGRAM
     Route: 065
  4. CARVEDILOL [Suspect]
     Active Substance: CARVEDILOL
     Indication: Product used for unknown indication
     Dosage: 2 DOSAGE FORM, ONCE
     Route: 065
  5. CARVEDILOL [Suspect]
     Active Substance: CARVEDILOL
     Dosage: 12.5 MILLIGRAM, ONCE A DAY
     Route: 065
  6. CARVEDILOL [Suspect]
     Active Substance: CARVEDILOL
     Dosage: 25 MILLIGRAM, ONCE A DAY (12.5 MG, 2X/DAY )
     Route: 065
  7. CLOPIDOGREL [Suspect]
     Active Substance: CLOPIDOGREL BISULFATE
     Indication: Postoperative care
     Dosage: 75 MILLIGRAM
     Route: 065
  8. FLUTICASONE PROPIONATE\SALMETEROL XINAFOATE [Suspect]
     Active Substance: FLUTICASONE PROPIONATE\SALMETEROL XINAFOATE
     Indication: Product used for unknown indication
     Dosage: 2 DOSAGE FORM (INHALATION)/2 DF (250 ?G +50 UG) INHALATION
  9. FLUTICASONE PROPIONATE\SALMETEROL XINAFOATE [Suspect]
     Active Substance: FLUTICASONE PROPIONATE\SALMETEROL XINAFOATE
     Dosage: 2 DOSAGE FORM (INHALATION)/2 DF (250 ?G +50 UG) INHALATION
     Route: 055
  10. HYDROCHLOROTHIAZIDE [Suspect]
     Active Substance: HYDROCHLOROTHIAZIDE
     Indication: Product used for unknown indication
     Dosage: 12.5 MILLIGRAM, ONCE A DAY
     Route: 065
  11. HYDROCHLOROTHIAZIDE [Suspect]
     Active Substance: HYDROCHLOROTHIAZIDE
     Dosage: 13 MILLIGRAM, ONCE A DAY
     Route: 065
  12. PANTOPRAZOLE [Suspect]
     Active Substance: PANTOPRAZOLE
     Indication: Helicobacter gastritis
     Dosage: 20 MILLIGRAM, ONCE A DAY
     Route: 065
  13. PANTOPRAZOLE [Suspect]
     Active Substance: PANTOPRAZOLE
     Dosage: 40 MILLIGRAM, TWO TIMES A DAY
     Route: 065
  14. RAMIPRIL [Suspect]
     Active Substance: RAMIPRIL
     Indication: Heart failure with reduced ejection fraction
     Dosage: 10 MILLIGRAM
     Route: 065
  15. RAMIPRIL [Suspect]
     Active Substance: RAMIPRIL
     Indication: Coronary artery disease
  16. ROSUVASTATIN [Suspect]
     Active Substance: ROSUVASTATIN
     Indication: Carotid arteriosclerosis
     Dosage: 10 MILLIGRAM, ONCE A DAY
     Route: 065
  17. ROSUVASTATIN [Suspect]
     Active Substance: ROSUVASTATIN
     Indication: Hypertension
     Dosage: 40 MILLIGRAM
     Route: 065
  18. ROSUVASTATIN [Suspect]
     Active Substance: ROSUVASTATIN
     Indication: Disease risk factor
     Dosage: 40 MILLIGRAM
     Route: 065
  19. ASPIRIN [Suspect]
     Active Substance: ASPIRIN
     Indication: Hypertension
     Dosage: 75 MILLIGRAM, ONCE A DAY ((IN THE EVENING)
     Route: 065
  20. ASPIRIN [Suspect]
     Active Substance: ASPIRIN
     Indication: Carotid arteriosclerosis
  21. ASPIRIN [Suspect]
     Active Substance: ASPIRIN
     Indication: Postoperative care
  22. ASPIRIN [Suspect]
     Active Substance: ASPIRIN
     Indication: Coronary artery bypass
  23. AMLODIPINE\RAMIPRIL [Suspect]
     Active Substance: AMLODIPINE\RAMIPRIL
     Indication: Coronary artery disease
     Dosage: 10 MILLIGRAM, ONCE A DAY
     Route: 065
  24. AMLODIPINE\RAMIPRIL [Suspect]
     Active Substance: AMLODIPINE\RAMIPRIL
     Indication: Heart failure with reduced ejection fraction
  25. AMLODIPINE\RAMIPRIL [Suspect]
     Active Substance: AMLODIPINE\RAMIPRIL
     Indication: Cardiac failure
  26. CARVEDILOL [Suspect]
     Active Substance: CARVEDILOL
     Indication: Product used for unknown indication
     Dosage: 13 MILLIGRAM, TWO TIMES A DAY
     Route: 065
  27. CARVEDILOL [Suspect]
     Active Substance: CARVEDILOL
     Dosage: 12.5 MILLIGRAM, ONCE A DAY
     Route: 065
  28. CARVEDILOL [Suspect]
     Active Substance: CARVEDILOL
     Dosage: 25 MILLIGRAM
     Route: 065
  29. ESOMEPRAZOLE [Suspect]
     Active Substance: ESOMEPRAZOLE
     Indication: Renal failure
     Dosage: 20 MILLIGRAM
     Route: 065
  30. ESOMEPRAZOLE [Suspect]
     Active Substance: ESOMEPRAZOLE
     Indication: Antiplatelet therapy
  31. ESOMEPRAZOLE [Suspect]
     Active Substance: ESOMEPRAZOLE
     Indication: Postoperative care
  32. FENOBIBRATE [Suspect]
     Active Substance: FENOFIBRATE
     Indication: Product used for unknown indication
     Dosage: 215 MILLIGRAM, ONCE A DAY(IN THE MORNING)
     Route: 065
  33. LINAGLIPTIN [Suspect]
     Active Substance: LINAGLIPTIN
     Indication: Product used for unknown indication
     Dosage: 5 MILLIGRAM, ONCE A DAY
     Route: 065
  34. METFORMIN [Suspect]
     Active Substance: METFORMIN HYDROCHLORIDE
     Indication: Product used for unknown indication
     Dosage: 2550 MILLIGRAM,(850 MILLIGRAM THREE TIMES A DAY) ONCE A DAY
     Route: 065
  35. TELMISARTAN [Suspect]
     Active Substance: TELMISARTAN
     Indication: Product used for unknown indication
     Dosage: 80 MILLIGRAM, ONCE A DAY (IN MORNING)
     Route: 065
  36. LINAGLIPTIN [Suspect]
     Active Substance: LINAGLIPTIN
     Indication: Carotid arteriosclerosis
     Dosage: 5 MILLIGRAM, ONCE A DAY
     Route: 065
  37. LINAGLIPTIN [Suspect]
     Active Substance: LINAGLIPTIN
     Indication: Disease risk factor
     Dosage: 40 MILLIGRAM
     Route: 065
  38. LINAGLIPTIN [Suspect]
     Active Substance: LINAGLIPTIN
     Indication: Hypertension
  39. TRIMETAZIDINE [Suspect]
     Active Substance: TRIMETAZIDINE
     Indication: Product used for unknown indication
     Dosage: 40 MILLIGRAM, ONCE A DAY
     Route: 065
  40. TRIMETAZIDINE [Suspect]
     Active Substance: TRIMETAZIDINE
     Dosage: 20 MILLIGRAM, TWO TIMES A DAY
     Route: 065
  41. CLOPIDOGREL [Suspect]
     Active Substance: CLOPIDOGREL BISULFATE
     Indication: Product used for unknown indication
     Dosage: UNK
     Route: 065
  42. CLOPIDOGREL HYDROCHLORIDE [Concomitant]
     Active Substance: CLOPIDOGREL HYDROCHLORIDE
     Indication: Product used for unknown indication
     Dosage: UNK
     Route: 065
  43. ESOMEPRAZOLE SODIUM [Concomitant]
     Active Substance: ESOMEPRAZOLE SODIUM
     Indication: Renal failure
     Dosage: 20 MILLIGRAM
     Route: 065
  44. ESOMEPRAZOLE SODIUM [Concomitant]
     Active Substance: ESOMEPRAZOLE SODIUM
     Indication: Antiplatelet therapy
  45. ESOMEPRAZOLE SODIUM [Concomitant]
     Active Substance: ESOMEPRAZOLE SODIUM
     Indication: Postoperative care

REACTIONS (50)
  - Heart failure with reduced ejection fraction [Unknown]
  - Ventricular arrhythmia [Unknown]
  - Syncope [Unknown]
  - Intestinal obstruction [Unknown]
  - Ventricular tachycardia [Unknown]
  - Supraventricular tachycardia [Unknown]
  - Hypotension [Unknown]
  - Diastolic dysfunction [Unknown]
  - Ejection fraction decreased [Unknown]
  - Rales [Unknown]
  - Fatigue [Unknown]
  - Electrocardiogram QT prolonged [Unknown]
  - Tricuspid valve incompetence [Unknown]
  - Mitral valve incompetence [Unknown]
  - Electrocardiogram Q wave abnormal [Unknown]
  - Coronary artery disease [Unknown]
  - Angiopathy [Unknown]
  - Left ventricular hypertrophy [Unknown]
  - Anaemia macrocytic [Unknown]
  - Helicobacter gastritis [Unknown]
  - Acute kidney injury [Unknown]
  - Oedema peripheral [Unknown]
  - Aortic valve incompetence [Unknown]
  - Asthenia [Unknown]
  - Systolic dysfunction [Unknown]
  - Hyperlipidaemia [Unknown]
  - Palpitations [Unknown]
  - Ventricular hypokinesia [Unknown]
  - Occult blood [Unknown]
  - Carotid arteriosclerosis [Unknown]
  - Dyspnoea at rest [Unknown]
  - Acute myocardial infarction [Unknown]
  - Carotid artery stenosis [Unknown]
  - Pericardial effusion [Unknown]
  - Chronic kidney disease [Unknown]
  - Hepatojugular reflux [Unknown]
  - Cardiomegaly [Unknown]
  - Coronary artery stenosis [Unknown]
  - Cardiac discomfort [Unknown]
  - Stenosis [Unknown]
  - Bundle branch block left [Unknown]
  - Pulmonary valve disease [Unknown]
  - Pericardial disease [Unknown]
  - Physical examination abnormal [Unknown]
  - Joint swelling [Unknown]
  - Echocardiogram abnormal [Unknown]
  - Left ventricular dysfunction [Unknown]
  - Mitral valve disease [Unknown]
  - Ill-defined disorder [Unknown]
  - Skin lesion [Unknown]

NARRATIVE: CASE EVENT DATE: 20190918
